FAERS Safety Report 4733558-3 (Version None)
Quarter: 2005Q3

REPORT INFORMATION
  Report Type: 
  Country: None (occurrence: None)
  Receive Date: 20050803
  Receipt Date: 20050803
  Transmission Date: 20060218
  Serious: Yes (Life-Threatening, Hospitalization)
  Sender: FDA-Public Use
  Company Number: None

PATIENT
  Sex: Female
  Weight: 77.1115 kg

DRUGS (2)
  1. TRILAFON [Suspect]
     Dosage: 4 MG, 2 X 8MG
     Dates: start: 19800101, end: 19800101
  2. PERPHENAZINE [Suspect]
     Dosage: 4 MG, 8MG
     Dates: start: 20040101

REACTIONS (1)
  - HALLUCINATION [None]
